FAERS Safety Report 11031821 (Version 1)
Quarter: 2015Q2

REPORT INFORMATION
  Report Type: Spontaneous
  Country: US (occurrence: None)
  Receive Date: 20150414
  Receipt Date: 20150414
  Transmission Date: 20150821
  Serious: Yes (Life-Threatening, Hospitalization)
  Sender: FDA-Public Use
  Company Number: None

PATIENT
  Age: 65 Year
  Sex: Female
  Weight: 150 kg

DRUGS (1)
  1. SENSODYNE PRONAMEL [Suspect]
     Active Substance: POTASSIUM NITRATE\SODIUM FLUORIDE
     Indication: DRUG THERAPY
     Dosage: ONCE A.M., ONCE P.M.  BRUSHED TEETH??
     Dates: start: 201404

REACTIONS (8)
  - Blood pressure decreased [None]
  - Dyspnoea [None]
  - Presyncope [None]
  - Suffocation feeling [None]
  - Toxicity to various agents [None]
  - Mobility decreased [None]
  - Seizure [None]
  - Asthenia [None]

NARRATIVE: CASE EVENT DATE: 201404
